FAERS Safety Report 9096590 (Version 2)
Quarter: 2014Q1

REPORT INFORMATION
  Report Type: Report from Study
  Country: BD (occurrence: BD)
  Receive Date: 20130211
  Receipt Date: 20140220
  Transmission Date: 20141002
  Serious: Yes (Death)
  Sender: FDA-Public Use
  Company Number: PHHY2013BD011767

PATIENT
  Age: 83 Year
  Sex: Male

DRUGS (2)
  1. EXELON PATCH [Suspect]
     Indication: DEMENTIA
     Dosage: 4.6 MG, UNK
     Route: 062
     Dates: start: 201001, end: 201004
  2. EXELON [Suspect]
     Indication: DEMENTIA
     Dosage: 3 MG,DAILY
     Route: 048
     Dates: start: 201201

REACTIONS (1)
  - Death [Fatal]
